FAERS Safety Report 12453277 (Version 2)
Quarter: 2016Q2

REPORT INFORMATION
  Report Type: Report from Study
  Country: US (occurrence: US)
  Receive Date: 20160609
  Receipt Date: 20160610
  Transmission Date: 20160815
  Serious: Yes (Other)
  Sender: FDA-Public Use
  Company Number: US-BAYER-2016-103977

PATIENT
  Age: 63 Year
  Sex: Female

DRUGS (1)
  1. NEXAVAR [Suspect]
     Active Substance: SORAFENIB
     Indication: HEPATOCELLULAR CARCINOMA
     Dosage: 200 MG, BID
     Route: 048
     Dates: start: 20160519, end: 20160531

REACTIONS (6)
  - Hepatic failure [None]
  - Oesophageal haemorrhage [None]
  - Fatigue [None]
  - Intra-abdominal haemorrhage [None]
  - Nausea [None]
  - Peripheral swelling [None]

NARRATIVE: CASE EVENT DATE: 201605
